FAERS Safety Report 8897400 (Version 1)
Quarter: 2012Q4

REPORT INFORMATION
  Report Type: 
  Country: US (occurrence: US)
  Receive Date: 20121108
  Receipt Date: 20121108
  Transmission Date: 20130627
  Serious: No
  Sender: FDA-Public Use
  Company Number: US-AMGEN-USASP2012027345

PATIENT
  Age: 59 Year
  Sex: Female
  Weight: 97.96 kg

DRUGS (16)
  1. ENBREL [Suspect]
     Indication: RHEUMATOID ARTHRITIS
     Dosage: 50 mg, qwk
     Route: 058
  2. ACIPHEX [Concomitant]
     Dosage: 20 mg, UNK
     Route: 048
  3. ALPRAZOLAM [Concomitant]
     Dosage: 1 mg, UNK
     Route: 048
  4. CYCLOBENZAPRINE [Concomitant]
     Dosage: 5 mg, UNK
     Route: 048
  5. ENDOCET [Concomitant]
     Route: 048
  6. MICARDIS [Concomitant]
     Dosage: 20 mg, UNK
     Route: 048
  7. ASPIRIN [Concomitant]
     Dosage: 81 mg, UNK
     Route: 048
  8. CITRACAL MAXIMUM [Concomitant]
     Route: 048
  9. FISH OIL [Concomitant]
     Route: 048
  10. VITAMIN B6 [Concomitant]
     Dosage: 50 mg, UNK
     Route: 048
  11. VIT B12 [Concomitant]
     Dosage: 1000 mug, UNK
     Route: 048
  12. VITAMIN C                          /00008001/ [Concomitant]
     Dosage: 500 mg, UNK
     Route: 048
  13. CYMBALTA [Concomitant]
     Dosage: 20 mg, UNK
     Route: 048
  14. METHOTREXATE [Concomitant]
     Dosage: 2.5 mg, UNK
     Route: 048
  15. ADVAIR [Concomitant]
     Route: 048
  16. LEVOTHYROXIN [Concomitant]
     Dosage: 100 mug, UNK
     Route: 048

REACTIONS (2)
  - Injection site reaction [Unknown]
  - Sinusitis [Recovered/Resolved]
